FAERS Safety Report 4848043-8 (Version None)
Quarter: 2005Q4

REPORT INFORMATION
  Report Type: 
  Country: None (occurrence: None)
  Receive Date: 20051206
  Receipt Date: 20051116
  Transmission Date: 20060501
  Serious: Yes (Death, Other)
  Sender: FDA-Public Use
  Company Number: GBS051018681

PATIENT
  Age: 40 Year
  Sex: Male
  Weight: 90.2 kg

DRUGS (2)
  1. GEMZAR [Suspect]
     Indication: NON-SMALL CELL LUNG CANCER
     Dosage: 2546 MG, INTRAVENOUS
     Route: 042
     Dates: start: 20050512
  2. CARBOPLATIN [Concomitant]

REACTIONS (3)
  - FALL [None]
  - MYOCARDIAL INFARCTION [None]
  - PANCYTOPENIA [None]
